FAERS Safety Report 5201593-7 (Version None)
Quarter: 2006Q4

REPORT INFORMATION
  Report Type: 
  Country: None (occurrence: None)
  Receive Date: 20061006
  Receipt Date: 20051114
  Transmission Date: 20070319
  Serious: Yes (Other)
  Sender: FDA-Public Use
  Company Number: 200513430GDS

PATIENT
  Sex: Male

DRUGS (3)
  1. NAPROSYN [Suspect]
     Indication: PAIN
  2. CIPRO [Suspect]
     Indication: ARTHRITIS BACTERIAL
     Dosage: INTRAVENOUS
     Route: 042
  3. CIPRO [Suspect]
     Indication: ARTHRITIS BACTERIAL
     Dosage: ORAL
     Route: 048

REACTIONS (6)
  - ANXIETY [None]
  - DEPRESSION [None]
  - DRUG INTERACTION [None]
  - PARAESTHESIA [None]
  - SLEEP DISORDER [None]
  - SUICIDAL IDEATION [None]
